FAERS Safety Report 18564107 (Version 1)
Quarter: 2020Q4

REPORT INFORMATION
  Report Type: Spontaneous
  Country: US (occurrence: US)
  Receive Date: 20201130
  Receipt Date: 20201130
  Transmission Date: 20210114
  Serious: Yes (Disabling)
  Sender: FDA-Public Use
  Company Number: None

PATIENT
  Age: 60 Year
  Sex: Male
  Weight: 100.8 kg

DRUGS (2)
  1. CLOTRIMAZOLE AND BETAMETHASONE DIPROPIONATE [Suspect]
     Active Substance: BETAMETHASONE\BETAMETHASONE DIPROPIONATE\CLOTRIMAZOLE
     Indication: TINEA CRURIS
     Route: 061
     Dates: start: 20200909, end: 20200924
  2. MULTIVITAMIN [Concomitant]
     Active Substance: VITAMINS

REACTIONS (5)
  - Dehydration [None]
  - Muscular weakness [None]
  - Muscle tightness [None]
  - Muscle spasms [None]
  - Muscle twitching [None]

NARRATIVE: CASE EVENT DATE: 20200927
